FAERS Safety Report 4291163-X (Version None)
Quarter: 2004Q1

REPORT INFORMATION
  Report Type: 
  Country: None (occurrence: None)
  Receive Date: 20040211
  Receipt Date: 20040204
  Transmission Date: 20041129
  Serious: Yes (Other)
  Sender: FDA-Public Use
  Company Number: 200411611GDDC

PATIENT
  Age: 43 Year
  Sex: Male
  Weight: 101 kg

DRUGS (2)
  1. INSULIN GLARGINE [Suspect]
     Indication: DIABETES MELLITUS
     Dosage: DOSE UNIT: UNITS
     Route: 058
     Dates: start: 20040124, end: 20040126
  2. NOVORAPID [Concomitant]
     Indication: DIABETES MELLITUS
     Dosage: DOSE: WITH DAYTIME MEALS

REACTIONS (3)
  - HALLUCINATION, AUDITORY [None]
  - MANIA [None]
  - TREMOR [None]
